FAERS Safety Report 17620071 (Version 1)
Quarter: 2020Q2

REPORT INFORMATION
  Report Type: Spontaneous
  Country: FR (occurrence: FR)
  Receive Date: 20200403
  Receipt Date: 20200403
  Transmission Date: 20200713
  Serious: Yes (Hospitalization)
  Sender: FDA-Public Use
  Company Number: FR-UCBSA-2020013855

PATIENT
  Age: 19 Year
  Sex: Male
  Weight: 56.6 kg

DRUGS (2)
  1. KEPPRA [Suspect]
     Active Substance: LEVETIRACETAM
     Indication: MYOCLONUS
     Dosage: 500MG 0.5 DAY
     Route: 048
     Dates: start: 20200122, end: 20200219
  2. ALECENSA [Suspect]
     Active Substance: ALECTINIB HYDROCHLORIDE
     Indication: LYMPHOMA
     Dosage: 600MG 0.5 DAY
     Route: 048
     Dates: start: 20200124, end: 20200219

REACTIONS (2)
  - Mania [Recovered/Resolved]
  - Delirium [Recovered/Resolved]

NARRATIVE: CASE EVENT DATE: 20200210
